FAERS Safety Report 9743797 (Version 1)
Quarter: 2013Q4

REPORT INFORMATION
  Report Type: Spontaneous
  Country: US (occurrence: US)
  Receive Date: 20131210
  Receipt Date: 20131210
  Transmission Date: 20140711
  Serious: No
  Sender: FDA-Public Use
  Company Number: US-BIOGENIDEC-2013BI096515

PATIENT
  Sex: Female

DRUGS (15)
  1. TECFIDERA [Suspect]
     Indication: MULTIPLE SCLEROSIS
  2. TECFIDERA [Suspect]
     Indication: MULTIPLE SCLEROSIS
     Route: 048
     Dates: start: 201305
  3. AMPYRA [Concomitant]
     Indication: MULTIPLE SCLEROSIS
     Route: 048
  4. METAMUCIL [Concomitant]
  5. ASPIRIN EC [Concomitant]
  6. FISH OIL [Concomitant]
  7. GLUCOSAMINE SULFATE [Concomitant]
  8. CALCIUM CITRATE +D [Concomitant]
  9. VESICARE [Concomitant]
  10. EXFORGE [Concomitant]
  11. LASIX [Concomitant]
  12. BACLOFEN [Concomitant]
  13. GABAPENTIN [Concomitant]
  14. PROBIOTIC ACIDOPHILUS [Concomitant]
  15. FIBER [Concomitant]

REACTIONS (1)
  - White blood cell count decreased [Unknown]
